FAERS Safety Report 6465006-X (Version None)
Quarter: 2009Q4

REPORT INFORMATION
  Report Type: 
  Country: None (occurrence: None)
  Receive Date: 20091201
  Receipt Date: 20091126
  Transmission Date: 20100525
  Serious: Yes (Other)
  Sender: FDA-Public Use
  Company Number: CA-ALLERGAN-0912871US

PATIENT
  Age: 25 Year
  Sex: Female

DRUGS (3)
  1. BOTOX [Suspect]
     Indication: SPASTIC PARAPLEGIA
     Dosage: 525 UNITS, SINGLE
     Route: 030
     Dates: start: 20090601, end: 20090601
  2. BOTOX [Suspect]
     Indication: MUSCLE SPASTICITY
     Dosage: 600 UNITS, SINGLE
     Route: 030
     Dates: start: 20090301, end: 20090301
  3. PHENOL [Suspect]
     Dosage: 2.5 ML, SINGLE
     Route: 030
     Dates: start: 20090601, end: 20090601

REACTIONS (1)
  - MUSCULAR WEAKNESS [None]
